FAERS Safety Report 7240812-2 (Version None)
Quarter: 2011Q1

REPORT INFORMATION
  Report Type: 
  Country: None (occurrence: None)
  Receive Date: 20110120
  Receipt Date: 20110120
  Transmission Date: 20110831
  Serious: Yes (Other)
  Sender: FDA-Public Use
  Company Number: None

PATIENT
  Age: 60 Year
  Sex: Female
  Weight: 68.0396 kg

DRUGS (1)
  1. CRESTOR [Suspect]
     Indication: BLOOD CHOLESTEROL
     Dosage: 20 MG. 1 PER DAY PO
     Route: 048
     Dates: start: 20101025, end: 20101028

REACTIONS (2)
  - MUSCLE SPASMS [None]
  - MIDDLE INSOMNIA [None]
